FAERS Safety Report 10184057 (Version 1)
Quarter: 2014Q2

REPORT INFORMATION
  Report Type: Spontaneous
  Country: FI (occurrence: FI)
  Receive Date: 20140520
  Receipt Date: 20140520
  Transmission Date: 20141212
  Serious: Yes (Other)
  Sender: FDA-Public Use
  Company Number: FI-GLAXOSMITHKLINE-B0995094A

PATIENT
  Sex: Female

DRUGS (1)
  1. RELVAR ELLIPTA [Suspect]
     Indication: PRODUCT USED FOR UNKNOWN INDICATION
     Dates: start: 201405, end: 201405

REACTIONS (3)
  - Bronchial obstruction [Recovered/Resolved]
  - Palpitations [Unknown]
  - Dysgeusia [Unknown]
